FAERS Safety Report 24930510 (Version 1)
Quarter: 2025Q1

REPORT INFORMATION
  Report Type: Spontaneous
  Country: JP (occurrence: JP)
  Receive Date: 20250205
  Receipt Date: 20250205
  Transmission Date: 20250408
  Serious: Yes (Other)
  Sender: INCYTE
  Company Number: JP-002147023-NVSJ2025JP001403

PATIENT

DRUGS (1)
  1. RUXOLITINIB [Suspect]
     Active Substance: RUXOLITINIB
     Indication: Polycythaemia vera
     Route: 048

REACTIONS (3)
  - Transformation to acute myeloid leukaemia [Unknown]
  - Malignant neoplasm progression [Unknown]
  - Myelofibrosis [Unknown]
